FAERS Safety Report 4912175-6 (Version None)
Quarter: 2006Q1

REPORT INFORMATION
  Report Type: 
  Country: None (occurrence: None)
  Receive Date: 20060215
  Receipt Date: 20050901
  Transmission Date: 20060701
  Serious: No
  Sender: FDA-Public Use
  Company Number: US-GLAXOSMITHKLINE-A0572733A

PATIENT
  Age: 54 Year
  Sex: Female

DRUGS (5)
  1. VALACYCLOVIR HCL [Suspect]
     Dosage: 1000MG PER DAY
     Route: 048
  2. DHEA [Concomitant]
  3. THYROID TAB [Concomitant]
  4. ASCORBIC ACID [Concomitant]
  5. UNKNOWN SUPPLEMENT [Concomitant]

REACTIONS (2)
  - DRUG INEFFECTIVE [None]
  - HERPES SIMPLEX [None]
